FAERS Safety Report 5628676-1 (Version None)
Quarter: 2008Q1

REPORT INFORMATION
  Report Type: 
  Country: None (occurrence: None)
  Receive Date: 20080215
  Receipt Date: 20080215
  Transmission Date: 20080703
  Serious: Yes (Other)
  Sender: FDA-Public Use
  Company Number: None

PATIENT
  Age: 50 Year
  Sex: Female
  Weight: 90.7194 kg

DRUGS (2)
  1. LORAZEPAM [Suspect]
     Indication: ANXIETY
     Dosage: 1 MG 4 TIMES A DAY PO
     Route: 048
     Dates: start: 20080128, end: 20080213
  2. LORAZEPAM [Suspect]
     Indication: ATRIAL FIBRILLATION
     Dosage: 1 MG 4 TIMES A DAY PO
     Route: 048
     Dates: start: 20080128, end: 20080213

REACTIONS (9)
  - ABDOMINAL PAIN UPPER [None]
  - AGITATION [None]
  - CHEST PAIN [None]
  - DIARRHOEA [None]
  - DYSPNOEA [None]
  - NERVOUSNESS [None]
  - PAIN IN EXTREMITY [None]
  - PHARMACEUTICAL PRODUCT COMPLAINT [None]
  - PHARYNGEAL OEDEMA [None]
